FAERS Safety Report 8984495 (Version 2)
Quarter: 2013Q1

REPORT INFORMATION
  Report Type: Report from Study
  Country: DK (occurrence: DK)
  Receive Date: 20121226
  Receipt Date: 20130308
  Transmission Date: 20140127
  Serious: Yes (Death, Life-Threatening, Hospitalization)
  Sender: FDA-Public Use
  Company Number: DK-PFIZER INC-2012322555

PATIENT
  Age: 30 Year
  Sex: Female

DRUGS (9)
  1. IRINOTECAN HCL [Suspect]
     Indication: MALIGNANT GLIOMA
     Dosage: 340 MG/M2, UNK
     Route: 042
     Dates: start: 20071011, end: 20081030
  2. CETUXIMAB [Suspect]
     Indication: MALIGNANT GLIOMA
     Dosage: 250 MG/M2, UNK
     Route: 042
     Dates: start: 20071011, end: 20081030
  3. BEVACIZUMAB [Suspect]
     Indication: MALIGNANT GLIOMA
     Dosage: 10 MG/KG, UNK
     Route: 042
     Dates: start: 20071011, end: 20081030
  4. FRAGMIN [Concomitant]
     Dosage: 1DF:500 IE
  5. MORPHINE SULFATE [Concomitant]
     Dosage: TOTAL DAILY DOSE /UNIT 5MG PN
  6. OXYNORM [Concomitant]
     Dosage: TOTAL DAILY DOSE 5MG PN
  7. IRON [Concomitant]
  8. PANODIL [Concomitant]
     Dosage: 4 G, UNK
  9. OXYCONTIN [Concomitant]
     Dosage: 20 MG, UNK

REACTIONS (5)
  - Cerebral infarction [Fatal]
  - Respiratory distress [Recovered/Resolved]
  - Erysipelas [Unknown]
  - Fall [Unknown]
  - Femoral neck fracture [Recovered/Resolved with Sequelae]
